FAERS Safety Report 6200361-7 (Version None)
Quarter: 2009Q2

REPORT INFORMATION
  Report Type: 
  Country: None (occurrence: None)
  Receive Date: 20090522
  Receipt Date: 20090517
  Transmission Date: 20091009
  Serious: Yes (Other)
  Sender: FDA-Public Use
  Company Number: US-ROCHE-633310

PATIENT
  Sex: Female

DRUGS (3)
  1. BONIVA [Suspect]
     Indication: OSTEOPOROSIS
     Route: 048
     Dates: start: 20070101
  2. BONIVA [Suspect]
     Route: 042
  3. BONIVA [Suspect]
     Route: 042
     Dates: start: 20090515

REACTIONS (8)
  - ABDOMINAL PAIN [None]
  - DIARRHOEA [None]
  - DYSPEPSIA [None]
  - EATING DISORDER [None]
  - MYALGIA [None]
  - PELVIC FRACTURE [None]
  - PYREXIA [None]
  - VOMITING [None]
